FAERS Safety Report 20783148 (Version 1)
Quarter: 2022Q2

REPORT INFORMATION
  Report Type: Spontaneous
  Country: NL (occurrence: NL)
  Receive Date: 20220504
  Receipt Date: 20220504
  Transmission Date: 20220720
  Serious: Yes (Other)
  Sender: FDA-Public Use
  Company Number: None

PATIENT
  Age: 20 Year
  Sex: Female
  Weight: 60 kg

DRUGS (1)
  1. DULOXETINE HYDROCHLORIDE [Suspect]
     Active Substance: DULOXETINE HYDROCHLORIDE
     Indication: Fibromyalgia
     Dosage: 60 MG, DAILY
     Route: 065
     Dates: start: 2020

REACTIONS (12)
  - Hand dermatitis [Not Recovered/Not Resolved]
  - Anal eczema [Not Recovered/Not Resolved]
  - Vulval eczema [Not Recovered/Not Resolved]
  - Vaginal discharge [Unknown]
  - Urinary incontinence [Unknown]
  - Tremor [Unknown]
  - Feeling hot [Unknown]
  - Hyperhidrosis [Unknown]
  - Libido decreased [Unknown]
  - Hallucination, visual [Unknown]
  - Chills [Unknown]
  - Off label use [Unknown]

NARRATIVE: CASE EVENT DATE: 20211001
